FAERS Safety Report 10516046 (Version 2)
Quarter: 2014Q4

REPORT INFORMATION
  Report Type: Spontaneous
  Country: US (occurrence: US)
  Receive Date: 20141014
  Receipt Date: 20141021
  Transmission Date: 20150528
  Serious: No
  Sender: FDA-Public Use
  Company Number: CHPA2014US013826

PATIENT
  Age: 79 Year
  Sex: Female

DRUGS (1)
  1. KROGER STEP 1 21 MG [Suspect]
     Active Substance: NICOTINE
     Indication: SMOKING CESSATION THERAPY
     Dosage: 1 DF, DAILY
     Route: 062
     Dates: start: 2014, end: 20141010

REACTIONS (2)
  - Polyp [Unknown]
  - Nicotine dependence [Not Recovered/Not Resolved]

NARRATIVE: CASE EVENT DATE: 20141006
